FAERS Safety Report 19509840 (Version 5)
Quarter: 2021Q3

REPORT INFORMATION
  Report Type: Report from Study
  Country: US (occurrence: US)
  Receive Date: 20210708
  Receipt Date: 20210920
  Transmission Date: 20211014
  Serious: Yes (Hospitalization, Other)
  Sender: FDA-Public Use
  Company Number: US-BAUSCH-BL-2021-024582

PATIENT
  Age: 57 Year
  Sex: Female
  Weight: 113.5 kg

DRUGS (2)
  1. XIFAXAN [Suspect]
     Active Substance: RIFAXIMIN
     Indication: HEPATIC ENCEPHALOPATHY
     Route: 048
     Dates: start: 20210217, end: 20210703
  2. XIFAXAN [Suspect]
     Active Substance: RIFAXIMIN
     Indication: HEPATIC STEATOSIS

REACTIONS (5)
  - Model for end stage liver disease score increased [Unknown]
  - Mental status changes [Unknown]
  - Treatment noncompliance [Unknown]
  - Liver transplant [Unknown]
  - Hepatic failure [Unknown]

NARRATIVE: CASE EVENT DATE: 2021
